FAERS Safety Report 14057554 (Version 1)
Quarter: 2017Q4

REPORT INFORMATION
  Report Type: Spontaneous
  Country: US (occurrence: US)
  Receive Date: 20171006
  Receipt Date: 20171006
  Transmission Date: 20180321
  Serious: Yes (Death, Hospitalization, Other)
  Sender: FDA-Public Use
  Company Number: PHHY2017US146506

PATIENT
  Sex: Female

DRUGS (7)
  1. AMPICILLIN [Concomitant]
     Active Substance: AMPICILLIN
     Indication: HAEMODYNAMIC INSTABILITY
     Route: 065
  2. ENOXAPARIN [Suspect]
     Active Substance: ENOXAPARIN
     Indication: FOETAL EXPOSURE DURING PREGNANCY
     Dosage: MATERNAL DOSE: 40 MG DAILY
     Route: 064
  3. ASPIRIN. [Suspect]
     Active Substance: ASPIRIN
     Indication: FOETAL EXPOSURE DURING PREGNANCY
     Dosage: MATERNAL DOSE: 81 MG DAILY
     Route: 064
  4. DOPAMINE [Concomitant]
     Active Substance: DOPAMINE\DOPAMINE HYDROCHLORIDE
     Indication: PRODUCT USED FOR UNKNOWN INDICATION
     Route: 065
  5. CEFTRIAXONE. [Concomitant]
     Active Substance: CEFTRIAXONE
     Indication: HAEMODYNAMIC INSTABILITY
     Route: 065
  6. EPINEPHRINE. [Concomitant]
     Active Substance: EPINEPHRINE
     Indication: PRODUCT USED FOR UNKNOWN INDICATION
     Route: 065
  7. HIDROCORTISON [Concomitant]
     Active Substance: HYDROCORTISONE
     Indication: HAEMODYNAMIC INSTABILITY
     Route: 065

REACTIONS (11)
  - Bradycardia foetal [Unknown]
  - Pulmonary hypertension [Fatal]
  - Systolic dysfunction [Recovering/Resolving]
  - Generalised oedema [Fatal]
  - Pleural effusion [Fatal]
  - Neonatal respiratory distress syndrome [Fatal]
  - Atrioventricular block complete [Unknown]
  - Ventricular dysfunction [Recovering/Resolving]
  - Patent ductus arteriosus [Unknown]
  - Foetal exposure during pregnancy [Unknown]
  - Low birth weight baby [Unknown]
